FAERS Safety Report 6152969-5 (Version None)
Quarter: 2009Q2

REPORT INFORMATION
  Report Type: 
  Country: None (occurrence: None)
  Receive Date: 20090413
  Receipt Date: 20090409
  Transmission Date: 20091009
  Serious: Yes (Life-Threatening)
  Sender: FDA-Public Use
  Company Number: JP-JNJFOC-20090303776

PATIENT
  Sex: Male
  Weight: 58 kg

DRUGS (11)
  1. RISPERDAL [Suspect]
     Indication: ANXIETY
     Route: 048
  2. RISPERDAL [Suspect]
     Indication: SCHIZOPHRENIA
     Route: 048
  3. RISPERIDONE [Suspect]
     Indication: DRUG USE FOR UNKNOWN INDICATION
     Route: 048
  4. CONTOMIN [Suspect]
     Indication: ANXIETY
     Route: 048
  5. CONTOMIN [Suspect]
     Indication: SCHIZOPHRENIA
     Route: 048
  6. VEGETAMIN-A [Suspect]
     Indication: ANXIETY
     Route: 048
  7. VEGETAMIN-A [Suspect]
     Indication: SCHIZOPHRENIA
     Route: 048
  8. BENZALIN [Concomitant]
     Indication: ANXIETY
     Route: 048
  9. BENZALIN [Concomitant]
     Indication: SCHIZOPHRENIA
     Route: 048
  10. WYPAX [Concomitant]
     Indication: ANXIETY
     Route: 048
  11. WYPAX [Concomitant]
     Indication: SCHIZOPHRENIA
     Route: 048

REACTIONS (2)
  - NEUROLEPTIC MALIGNANT SYNDROME [None]
  - PNEUMONIA [None]
